FAERS Safety Report 4596699-X (Version None)
Quarter: 2005Q1

REPORT INFORMATION
  Report Type: 
  Country: None (occurrence: None)
  Receive Date: 20050302
  Receipt Date: 20050204
  Transmission Date: 20050727
  Serious: Yes (Other)
  Sender: FDA-Public Use
  Company Number: US-GLAXOSMITHKLINE-A0544022A

PATIENT
  Age: 13 Year
  Sex: Male

DRUGS (1)
  1. WELLBUTRIN XL [Suspect]
     Indication: DRUG USE FOR UNKNOWN INDICATION
     Route: 048

REACTIONS (6)
  - AMNESIA [None]
  - CONVULSION [None]
  - DEHYDRATION [None]
  - ELECTROLYTE IMBALANCE [None]
  - FALL [None]
  - TREMOR [None]
